FAERS Safety Report 20152033 (Version 1)
Quarter: 2021Q4

REPORT INFORMATION
  Report Type: Spontaneous
  Country: US (occurrence: None)
  Receive Date: 20211205
  Receipt Date: 20211205
  Transmission Date: 20220303
  Serious: No
  Sender: FDA-Public Use
  Company Number: None

PATIENT
  Age: 65 Year
  Sex: Male
  Weight: 88.9 kg

DRUGS (8)
  1. BARICITINIB [Suspect]
     Active Substance: BARICITINIB
     Indication: COVID-19
     Dosage: FREQUENCY : DAILY;?
     Route: 048
     Dates: start: 20211203, end: 20211205
  2. ASPIRIN [Concomitant]
     Active Substance: ASPIRIN
     Dates: start: 20211203
  3. ATORVASTATIN [Concomitant]
     Active Substance: ATORVASTATIN
     Dates: start: 20211203
  4. dexamethasone 6mg [Concomitant]
     Dates: start: 20211201
  5. GABAPENTIN [Concomitant]
     Active Substance: GABAPENTIN
     Dates: start: 20211202
  6. PANTOPRAZOLE SODIUM [Concomitant]
     Active Substance: PANTOPRAZOLE SODIUM
     Dates: start: 20211202
  7. FENTANYL [Concomitant]
     Active Substance: FENTANYL
     Dates: start: 20211204
  8. propofol continuous infusion [Concomitant]
     Dates: start: 20211204

REACTIONS (2)
  - Peripheral ischaemia [None]
  - Embolism venous [None]

NARRATIVE: CASE EVENT DATE: 20211204
